FAERS Safety Report 18932710 (Version 1)
Quarter: 2021Q1

REPORT INFORMATION
  Report Type: Spontaneous
  Country: US (occurrence: US)
  Receive Date: 20210223
  Receipt Date: 20210223
  Transmission Date: 20210420
  Serious: No
  Sender: FDA-Public Use
  Company Number: None

PATIENT
  Sex: Female

DRUGS (7)
  1. METHYLPHENID [Concomitant]
     Active Substance: METHYLPHENIDATE
     Dates: start: 20210119
  2. COSENTYX [Concomitant]
     Active Substance: SECUKINUMAB
     Dates: start: 20210210
  3. AMOX/CLAV [Concomitant]
     Active Substance: AMOXICILLIN\CLAVULANATE POTASSIUM
     Dates: start: 20210217
  4. TOPIRAMATE. [Concomitant]
     Active Substance: TOPIRAMATE
     Dates: start: 20210222
  5. COSENTYX [Suspect]
     Active Substance: SECUKINUMAB
     Indication: PSORIATIC ARTHROPATHY
     Dosage: ?          OTHER FREQUENCY:EVERY MONTH;?
     Route: 058
     Dates: start: 20190503
  6. OLANZAPINE. [Concomitant]
     Active Substance: OLANZAPINE
     Dates: start: 20201102
  7. ATORVASTATIN [Concomitant]
     Active Substance: ATORVASTATIN
     Dates: start: 20201203

REACTIONS (9)
  - Adverse drug reaction [None]
  - Biopsy breast [None]
  - Abdominal pain upper [None]
  - Renal cancer [None]
  - Sinusitis [None]
  - Urinary tract infection [None]
  - Pulmonary mass [None]
  - Diarrhoea [None]
  - Colitis [None]
